FAERS Safety Report 6293781-6 (Version None)
Quarter: 2009Q3

REPORT INFORMATION
  Report Type: 
  Country: None (occurrence: None)
  Receive Date: 20090803
  Receipt Date: 20090721
  Transmission Date: 20100115
  Serious: Yes (Hospitalization)
  Sender: FDA-Public Use
  Company Number: GB-AMGEN-US350915

PATIENT
  Sex: Female
  Weight: 59.5 kg

DRUGS (5)
  1. ENBREL [Suspect]
     Indication: RHEUMATOID ARTHRITIS
     Route: 058
     Dates: start: 20030801, end: 20090605
  2. ACETAMINOPHEN W/ CODEINE [Concomitant]
     Indication: PAIN
     Dosage: 30/500 AS REQUIRED
     Route: 048
  3. FLUOXETINE [Concomitant]
     Indication: DEPRESSION
     Dosage: 40 MG (FREQUENCY UNKNOWN)
  4. PREDNISOLONE [Concomitant]
     Indication: RHEUMATOID ARTHRITIS
     Dosage: 7.5 MG (FREQUENCY UNKNOWN)
     Route: 048
     Dates: start: 20090601
  5. PREDNISOLONE [Concomitant]
     Indication: COLITIS

REACTIONS (1)
  - COLITIS ULCERATIVE [None]
